FAERS Safety Report 11617602 (Version 2)
Quarter: 2015Q4

REPORT INFORMATION
  Report Type: Report from Study
  Country: BE (occurrence: BE)
  Receive Date: 20151009
  Receipt Date: 20151019
  Transmission Date: 20160304
  Serious: Yes (Hospitalization)
  Sender: FDA-Public Use
  Company Number: BE-ABBVIE-15P-013-1476493-00

PATIENT
  Sex: Male

DRUGS (4)
  1. DUODOPA [Suspect]
     Active Substance: CARBIDOPA\LEVODOPA
     Dosage: AM=6ML; CD=3.7ML/HR DURING 16 HRS; ED=3ML
     Route: 050
     Dates: start: 20151002, end: 20151002
  2. DUODOPA [Suspect]
     Active Substance: CARBIDOPA\LEVODOPA
     Dosage: UNKNOWN
     Route: 050
     Dates: end: 20151012
  3. DUODOPA [Suspect]
     Active Substance: CARBIDOPA\LEVODOPA
     Indication: PARKINSON^S DISEASE
     Dosage: AM=5ML; CD=2.2ML/HR DURING 16HRS; ED=1ML
     Route: 050
     Dates: start: 20150928, end: 20151002
  4. DUODOPA [Suspect]
     Active Substance: CARBIDOPA\LEVODOPA
     Dosage: AM 3 ML, CD 4ML/H DURING 16 HRS;ED 3LM
     Route: 050
     Dates: start: 20151012

REACTIONS (4)
  - Dyspnoea [Unknown]
  - Lung infection [Recovered/Resolved]
  - Atrial fibrillation [Recovered/Resolved]
  - Pain in extremity [Unknown]
